FAERS Safety Report 7248903-7 (Version None)
Quarter: 2011Q1

REPORT INFORMATION
  Report Type: 
  Country: None (occurrence: None)
  Receive Date: 20110128
  Receipt Date: 20090721
  Transmission Date: 20110831
  Serious: Yes (Other)
  Sender: FDA-Public Use
  Company Number: US-BAYER-200914159NA

PATIENT
  Sex: Male
  Weight: 108.3 kg

DRUGS (20)
  1. OMNISCAN [Suspect]
     Dosage: 20 ML, ONCE
     Dates: start: 20050428, end: 20050428
  2. PREDNISONE [Concomitant]
     Dosage: 6 MG, QID
     Route: 048
  3. OMNISCAN [Suspect]
     Indication: NUCLEAR MAGNETIC RESONANCE IMAGING
     Dosage: 25 ML, ONCE
     Dates: start: 20040920, end: 20040920
  4. LOVENOX [Concomitant]
  5. PREVACID [Concomitant]
  6. MAGNEVIST [Suspect]
     Indication: NUCLEAR MAGNETIC RESONANCE IMAGING
     Dosage: 30 ML, ONCE
     Dates: start: 20040811, end: 20040811
  7. MAGNEVIST [Suspect]
     Dosage: 30 ML, ONCE
     Dates: start: 20040817, end: 20040817
  8. LASIX [Concomitant]
  9. CELEBREX [Concomitant]
  10. MAGNEVIST [Suspect]
     Dosage: 23 ML, UNK
     Dates: start: 20041006, end: 20041006
  11. MULTIHANCE [Suspect]
     Indication: NUCLEAR MAGNETIC RESONANCE IMAGING
  12. ARANESP [Concomitant]
  13. POTASSIUM [Concomitant]
  14. MAGNEVIST [Suspect]
     Dosage: 30 ML, ONCE
     Dates: start: 20040825, end: 20040825
  15. OPTIMARK [Suspect]
     Indication: NUCLEAR MAGNETIC RESONANCE IMAGING
  16. METOPROLOL [Concomitant]
  17. TAPAZOLE [Concomitant]
     Dosage: 10 MG, QID
  18. TERAZOL 1 [Concomitant]
  19. PROHANCE [Suspect]
     Indication: NUCLEAR MAGNETIC RESONANCE IMAGING
  20. ZELNORM [Concomitant]
     Dosage: 6 MG, QID
     Route: 048

REACTIONS (19)
  - INJURY [None]
  - SKIN HYPERTROPHY [None]
  - PAIN [None]
  - DEFORMITY [None]
  - SCAR [None]
  - EMOTIONAL DISTRESS [None]
  - OEDEMA PERIPHERAL [None]
  - NEPHROGENIC SYSTEMIC FIBROSIS [None]
  - SKIN TIGHTNESS [None]
  - JOINT RANGE OF MOTION DECREASED [None]
  - MYOSCLEROSIS [None]
  - SKIN HYPERPIGMENTATION [None]
  - SKIN EXFOLIATION [None]
  - GENERAL PHYSICAL HEALTH DETERIORATION [None]
  - ANXIETY [None]
  - EXTREMITY CONTRACTURE [None]
  - FIBROSIS [None]
  - MOBILITY DECREASED [None]
  - SKIN INDURATION [None]
